FAERS Safety Report 10042932 (Version 2)
Quarter: 2014Q2

REPORT INFORMATION
  Report Type: Spontaneous
  Country: IT (occurrence: IT)
  Receive Date: 20140328
  Receipt Date: 20140401
  Transmission Date: 20141212
  Serious: Yes (Other)
  Sender: FDA-Public Use
  Company Number: IT-ROCHE-1367486

PATIENT
  Age: 63 Year
  Sex: Male
  Weight: 98 kg

DRUGS (8)
  1. AVASTIN [Suspect]
     Indication: COLON CANCER METASTATIC
     Route: 042
     Dates: start: 20130422, end: 20130528
  2. AVASTIN [Suspect]
     Dosage: DRUGS WAS REDUCED BY 50%.
     Route: 065
  3. IRINOTECAN HYDROCHLORIDE [Suspect]
     Indication: COLON CANCER METASTATIC
     Route: 042
     Dates: start: 20130422, end: 20130912
  4. IRINOTECAN HYDROCHLORIDE [Suspect]
     Dosage: DRUGS WAS REDUCED BY 50%.
     Route: 065
  5. 5-FU [Suspect]
     Indication: COLON CANCER METASTATIC
     Route: 040
     Dates: start: 20130424, end: 20130912
  6. 5-FU [Suspect]
     Route: 041
     Dates: start: 20130422, end: 20130912
  7. 5-FU [Suspect]
     Dosage: DRUGS WAS REDUCED BY 50%.
     Route: 065
  8. LEVOFOLINIC ACID [Concomitant]
     Indication: CHEMOTHERAPY
     Route: 042
     Dates: start: 20130422, end: 20130912

REACTIONS (2)
  - Infected skin ulcer [Recovering/Resolving]
  - Skin discolouration [Recovering/Resolving]
